FAERS Safety Report 7403606-0 (Version None)
Quarter: 2011Q2

REPORT INFORMATION
  Report Type: 
  Country: None (occurrence: None)
  Receive Date: 20110408
  Receipt Date: 20110325
  Transmission Date: 20111010
  Serious: Yes (Hospitalization)
  Sender: FDA-Public Use
  Company Number: PHHY2011NP25470

PATIENT
  Age: 27 Year
  Sex: Male

DRUGS (5)
  1. DEXAMETHASONE [Suspect]
     Dosage: 1 MG, TID
  2. NIFEDIPINE [Concomitant]
     Dosage: 30 MG, DAILY
  3. DEXAMETHASONE [Suspect]
     Indication: MOUNTAIN SICKNESS ACUTE
     Dosage: 4 MG, TID
  4. DEXAMETHASONE [Suspect]
     Dosage: 1 G, BID
  5. ACETAZOLAMIDE [Concomitant]
     Dosage: 250 MG, BID

REACTIONS (32)
  - CONFUSIONAL STATE [None]
  - URINE OUTPUT DECREASED [None]
  - ARTHRALGIA [None]
  - SOMNOLENCE [None]
  - DISORIENTATION [None]
  - ANAEMIA [None]
  - HEART RATE INCREASED [None]
  - RESTLESSNESS [None]
  - POST-TRAUMATIC STRESS DISORDER [None]
  - CONSCIOUSNESS FLUCTUATING [None]
  - PANIC ATTACK [None]
  - RASH [None]
  - PARAESTHESIA [None]
  - HALLUCINATION, AUDITORY [None]
  - ASTHENIA [None]
  - OSTEONECROSIS [None]
  - HYPOTENSION [None]
  - HAEMATEMESIS [None]
  - HEADACHE [None]
  - STEROID WITHDRAWAL SYNDROME [None]
  - DERMATITIS ACNEIFORM [None]
  - FAECES DISCOLOURED [None]
  - DEPRESSION [None]
  - GASTROINTESTINAL HAEMORRHAGE [None]
  - WHITE BLOOD CELL COUNT INCREASED [None]
  - OESOPHAGEAL ULCER [None]
  - FATIGUE [None]
  - TOXICITY TO VARIOUS AGENTS [None]
  - HAEMATOCHEZIA [None]
  - OCCULT BLOOD [None]
  - RECTAL HAEMORRHAGE [None]
  - DEPRESSED MOOD [None]
